FAERS Safety Report 22034874 (Version 2)
Quarter: 2023Q1

REPORT INFORMATION
  Report Type: Report from Study
  Country: TH (occurrence: None)
  Receive Date: 20230224
  Receipt Date: 20230301
  Transmission Date: 20230418
  Serious: Yes (Hospitalization)
  Sender: FDA-Public Use
  Company Number: 2022A411234

PATIENT
  Age: 14822 Day
  Sex: Male
  Weight: 76 kg

DRUGS (12)
  1. LENVATINIB [Suspect]
     Active Substance: LENVATINIB
     Indication: Hepatocellular carcinoma
     Route: 048
     Dates: start: 20221130, end: 20221130
  2. DURVALUMAB [Suspect]
     Active Substance: DURVALUMAB
     Indication: Hepatocellular carcinoma
     Route: 042
     Dates: start: 20221130, end: 20221130
  3. DURVALUMAB [Suspect]
     Active Substance: DURVALUMAB
     Indication: Hepatocellular carcinoma
     Route: 042
     Dates: start: 20221228, end: 20221228
  4. DURVALUMAB [Suspect]
     Active Substance: DURVALUMAB
     Indication: Hepatocellular carcinoma
     Route: 042
     Dates: start: 20230126, end: 20230126
  5. TREMELIMUMAB [Suspect]
     Active Substance: TREMELIMUMAB
     Indication: Hepatocellular carcinoma
     Route: 042
     Dates: start: 20221130, end: 20221130
  6. LAMIVUDINE [Concomitant]
     Active Substance: LAMIVUDINE
     Dates: start: 20171101
  7. PROPRANOLOL HYDROCHLORIDE [Concomitant]
     Active Substance: PROPRANOLOL HYDROCHLORIDE
     Dates: start: 20171101
  8. VITAMINS [Concomitant]
     Active Substance: VITAMINS
     Dates: start: 20171101
  9. MONTMORILLONITE [Concomitant]
     Active Substance: MONTMORILLONITE
     Dates: start: 20221212
  10. ORAL REHYDRATION SALT [Concomitant]
     Dates: start: 20221209
  11. CALAMINE LOTION [Concomitant]
     Active Substance: CALAMINE LOTION
     Dates: start: 20221205
  12. CHLORPHENIRAMINE MALEATE [Concomitant]
     Active Substance: CHLORPHENIRAMINE MALEATE
     Dates: start: 20221212

REACTIONS (1)
  - Diarrhoea infectious [Not Recovered/Not Resolved]

NARRATIVE: CASE EVENT DATE: 20221209
